FAERS Safety Report 6411934-0 (Version None)
Quarter: 2009Q4

REPORT INFORMATION
  Report Type: 
  Country: None (occurrence: None)
  Receive Date: 20091020
  Receipt Date: 20091007
  Transmission Date: 20100525
  Serious: Yes (Hospitalization)
  Sender: FDA-Public Use
  Company Number: 2009AC000195

PATIENT
  Sex: Male

DRUGS (1)
  1. DIGOXIN [Suspect]
     Indication: CARDIAC DISORDER
     Dosage: 0.125 MG; QD; PO
     Route: 048

REACTIONS (10)
  - ABDOMINAL HERNIA [None]
  - ADRENAL ADENOMA [None]
  - ADRENOMEGALY [None]
  - AORTIC ANEURYSM [None]
  - DUODENAL NEOPLASM [None]
  - LIPOMA [None]
  - PERIPHERAL VASCULAR DISORDER [None]
  - PROSTATOMEGALY [None]
  - RENAL CYST [None]
  - VASCULAR CALCIFICATION [None]
